FAERS Safety Report 12753575 (Version 1)
Quarter: 2016Q3

REPORT INFORMATION
  Report Type: Spontaneous
  Country: US (occurrence: US)
  Receive Date: 20160915
  Receipt Date: 20160915
  Transmission Date: 20161109
  Serious: No
  Sender: FDA-Public Use
  Company Number: US-ASTELLAS-2015US042767

PATIENT
  Sex: Male

DRUGS (2)
  1. XTANDI [Suspect]
     Active Substance: ENZALUTAMIDE
     Indication: PROSTATE CANCER METASTATIC
     Dosage: 4 CAPSULES (160 MG), ONCE DAILY
     Route: 065
     Dates: start: 20151017
  2. XTANDI [Suspect]
     Active Substance: ENZALUTAMIDE
     Dosage: 3 CAPSULES (120 MG), ONCE DAILY
     Route: 065
     Dates: start: 20151202

REACTIONS (7)
  - Retching [Recovered/Resolved]
  - Tremor [Recovered/Resolved]
  - Peripheral swelling [Not Recovered/Not Resolved]
  - Dizziness [Recovered/Resolved]
  - Fatigue [Recovering/Resolving]
  - Constipation [Recovering/Resolving]
  - Malaise [Recovering/Resolving]
